FAERS Safety Report 12518160 (Version 1)
Quarter: 2016Q2

REPORT INFORMATION
  Report Type: Spontaneous
  Country: FR (occurrence: FR)
  Receive Date: 20160630
  Receipt Date: 20160630
  Transmission Date: 20160815
  Serious: Yes (Other)
  Sender: FDA-Public Use
  Company Number: FR-JNJFOC-20160620008

PATIENT

DRUGS (2)
  1. IBRUTINIB [Suspect]
     Active Substance: IBRUTINIB
     Indication: MANTLE CELL LYMPHOMA
     Dosage: 420 TO 700 MG
     Route: 048
  2. IBRUTINIB [Suspect]
     Active Substance: IBRUTINIB
     Indication: CHRONIC LYMPHOCYTIC LEUKAEMIA
     Dosage: 420 TO 700 MG
     Route: 048

REACTIONS (14)
  - Neutropenia [Unknown]
  - Gastrointestinal haemorrhage [Unknown]
  - Off label use [Unknown]
  - Infection [Unknown]
  - Diarrhoea [Unknown]
  - Angiopathy [Unknown]
  - Haematoma [Unknown]
  - Blood disorder [Unknown]
  - Hypogammaglobulinaemia [Unknown]
  - Lung infection [Unknown]
  - Tumour lysis syndrome [Unknown]
  - Lymphatic disorder [Unknown]
  - Fatigue [Unknown]
  - Incorrect dose administered [Unknown]
